FAERS Safety Report 9232848 (Version 2)
Quarter: 2013Q2

REPORT INFORMATION
  Report Type: Spontaneous
  Country: US (occurrence: None)
  Receive Date: 20121031
  Receipt Date: 20130107
  Transmission Date: 20140414
  Serious: Yes (Other)
  Sender: FDA-Public Use
  Company Number: PHEH2012US011857

PATIENT
  Age: 55 Year
  Sex: Female

DRUGS (2)
  1. GILENYA (FTY) CAPSULE, 0.5MG [Suspect]
     Indication: MULTIPLE SCLEROSIS
     Route: 048
     Dates: start: 20120504
  2. ASTHMAHALER (EPINEPHRINE BITARTRATE) [Concomitant]

REACTIONS (7)
  - Vertigo [None]
  - Dizziness [None]
  - Joint lock [None]
  - Sluggishness [None]
  - Speech disorder [None]
  - Pain in extremity [None]
  - Dyspnoea [None]
